FAERS Safety Report 10330486 (Version 2)
Quarter: 2014Q3

REPORT INFORMATION
  Report Type: Spontaneous
  Country: DE (occurrence: DE)
  Receive Date: 20140722
  Receipt Date: 20140722
  Transmission Date: 20150326
  Serious: Yes (Life-Threatening, Other)
  Sender: FDA-Public Use
  Company Number: DE-ROCHE-1417070

PATIENT
  Age: 86 Year
  Sex: Female
  Weight: 83 kg

DRUGS (1)
  1. AVASTIN [Suspect]
     Active Substance: BEVACIZUMAB
     Indication: MACULAR DEGENERATION
     Dosage: 5 DOSES
     Route: 050

REACTIONS (6)
  - Off label use [Unknown]
  - Pneumonia [Unknown]
  - Polyneuropathy [Unknown]
  - Pulmonary haemorrhage [Recovered/Resolved with Sequelae]
  - Quadriplegia [Unknown]
  - Sepsis [Unknown]

NARRATIVE: CASE EVENT DATE: 201406
